FAERS Safety Report 4915238-4 (Version None)
Quarter: 2006Q1

REPORT INFORMATION
  Report Type: 
  Country: None (occurrence: None)
  Receive Date: 20060216
  Receipt Date: 20060216
  Transmission Date: 20060701
  Serious: Yes (Hospitalization)
  Sender: FDA-Public Use
  Company Number: None

PATIENT
  Sex: Male
  Weight: 97.0698 kg

DRUGS (9)
  1. COUMADIN [Suspect]
     Indication: ATRIAL FIBRILLATION
     Dosage: PO    PRIOR TO ADMISSION
     Route: 048
  2. DEMADEX [Concomitant]
  3. ZAROXOLYN [Concomitant]
  4. ZOCOR [Concomitant]
  5. COREG [Concomitant]
  6. ARANESP [Concomitant]
  7. DIGOXIN [Concomitant]
  8. FOLGARD [Concomitant]
  9. HECTOROL [Concomitant]

REACTIONS (2)
  - INTERNATIONAL NORMALISED RATIO INCREASED [None]
  - PROTHROMBIN TIME PROLONGED [None]
